FAERS Safety Report 8262928-4 (Version None)
Quarter: 2012Q2

REPORT INFORMATION
  Report Type: 
  Country: None (occurrence: None)
  Receive Date: 20120405
  Receipt Date: 20120328
  Transmission Date: 20120825
  Serious: Yes (Hospitalization, Other)
  Sender: FDA-Public Use
  Company Number: BR-GLAXOSMITHKLINE-B0793032A

PATIENT
  Sex: Female
  Weight: 52 kg

DRUGS (11)
  1. PROPATYLNITRATE [Concomitant]
  2. UNKNOWN DRUG [Concomitant]
  3. CITALOPRAM HYDROBROMIDE [Concomitant]
  4. POTASSIUM CANRENOATE [Concomitant]
  5. CHLORTHALIDONE [Concomitant]
  6. PROPAFENONE HCL [Suspect]
     Indication: PRODUCT USED FOR UNKNOWN INDICATION
     Route: 065
  7. AKINETON [Suspect]
     Indication: PARKINSON'S DISEASE
     Dosage: 2MG TWICE PER DAY
     Route: 048
  8. UNKNOWN DRUG [Concomitant]
     Indication: PARKINSON'S DISEASE
  9. XANTOFYL PALMITATE [Concomitant]
  10. QUETIAPINE FUMARATE [Concomitant]
  11. OMEPRAZOLE [Concomitant]
     Indication: HIATUS HERNIA
     Route: 048

REACTIONS (3)
  - PULMONARY CONGESTION [None]
  - URINARY TRACT INFECTION [None]
  - CARDIAC FAILURE [None]
